FAERS Safety Report 17456897 (Version 1)
Quarter: 2020Q1

REPORT INFORMATION
  Report Type: Report from Study
  Country: GB (occurrence: GB)
  Receive Date: 20200225
  Receipt Date: 20200225
  Transmission Date: 20200409
  Serious: Yes (Other)
  Sender: FDA-Public Use
  Company Number: GB-TEVA-2020-GB-1190864

PATIENT
  Sex: Male
  Weight: 3.1 kg

DRUGS (6)
  1. NEVIRAPINE. [Suspect]
     Active Substance: NEVIRAPINE
     Route: 063
     Dates: end: 20100610
  2. LOPINAVIR+RITONAVIR [Suspect]
     Active Substance: LOPINAVIR\RITONAVIR
     Route: 064
     Dates: start: 20100610
  3. ZIDOVUDINE. [Suspect]
     Active Substance: ZIDOVUDINE
     Route: 064
     Dates: end: 20100610
  4. TENOFOVIR [Suspect]
     Active Substance: TENOFOVIR
     Route: 064
     Dates: start: 20100610
  5. LAMIVUDINE. [Suspect]
     Active Substance: LAMIVUDINE
     Route: 064
     Dates: end: 20100610
  6. RALTEGRAVIR. [Suspect]
     Active Substance: RALTEGRAVIR
     Dosage: 800 MILLIGRAM DAILY;
     Route: 064
     Dates: start: 20100610

REACTIONS (2)
  - Volvulus [Unknown]
  - Foetal exposure during pregnancy [Unknown]
